FAERS Safety Report 5955406-6 (Version None)
Quarter: 2008Q4

REPORT INFORMATION
  Report Type: 
  Country: None (occurrence: None)
  Receive Date: 20081113
  Receipt Date: 20081104
  Transmission Date: 20090506
  Serious: Yes (Other)
  Sender: FDA-Public Use
  Company Number: GXKR2008GB10532

PATIENT
  Age: 45 Year
  Sex: Female

DRUGS (1)
  1. DOXYCYCLINE [Suspect]
     Indication: PERIODONTAL DISEASE
     Dosage: 20 MG, ORAL
     Route: 048
     Dates: start: 20081016, end: 20081020

REACTIONS (3)
  - HEADACHE [None]
  - INTRACRANIAL PRESSURE INCREASED [None]
  - VISION BLURRED [None]
